FAERS Safety Report 10304482 (Version 4)
Quarter: 2014Q4

REPORT INFORMATION
  Report Type: Spontaneous
  Country: US (occurrence: US)
  Receive Date: 20140715
  Receipt Date: 20141001
  Transmission Date: 20150528
  Serious: Yes (Other)
  Sender: FDA-Public Use
  Company Number: US-AMGEN-USASP2014052657

PATIENT
  Age: 53 Year
  Sex: Male

DRUGS (3)
  1. ENBREL [Suspect]
     Active Substance: ETANERCEPT
     Dosage: UNK
     Route: 065
  2. SAFFRON [Concomitant]
     Active Substance: SAFFRON
     Dosage: UNK
  3. ENBREL [Suspect]
     Active Substance: ETANERCEPT
     Indication: PSORIASIS
     Dosage: 50 MG, QWK
     Route: 058
     Dates: start: 201309

REACTIONS (7)
  - Rash macular [Recovered/Resolved]
  - Skin haemorrhage [Recovered/Resolved]
  - Psoriasis [Recovered/Resolved]
  - Pneumonia [Not Recovered/Not Resolved]
  - Scratch [Unknown]
  - Dermatitis contact [Unknown]
  - Incorrect product storage [Not Recovered/Not Resolved]

NARRATIVE: CASE EVENT DATE: 201405
